FAERS Safety Report 5033733-7 (Version None)
Quarter: 2006Q2

REPORT INFORMATION
  Report Type: 
  Country: None (occurrence: None)
  Receive Date: 20060623
  Receipt Date: 20060413
  Transmission Date: 20061013
  Serious: No
  Sender: FDA-Public Use
  Company Number: JP-MERCK-0604USA03156

PATIENT

DRUGS (3)
  1. PEPCID RPD [Suspect]
     Route: 042
  2. MEROPENEM [Concomitant]
     Route: 042
  3. TARGOCID [Concomitant]
     Route: 042

REACTIONS (1)
  - LUNG DISORDER [None]
